FAERS Safety Report 13517955 (Version 2)
Quarter: 2017Q2

REPORT INFORMATION
  Report Type: Report from Study
  Country: US (occurrence: US)
  Receive Date: 20170505
  Receipt Date: 20170519
  Transmission Date: 20170830
  Serious: Yes (Hospitalization, Other)
  Sender: FDA-Public Use
  Company Number: US-AMGEN-USASL2017065043

PATIENT
  Age: 82 Year
  Sex: Female

DRUGS (20)
  1. GABAPENTIN. [Concomitant]
     Active Substance: GABAPENTIN
  2. PLAVIX [Concomitant]
     Active Substance: CLOPIDOGREL BISULFATE
  3. TRICOR [Concomitant]
     Active Substance: FENOFIBRATE
  4. POTASSIUM CHLORIDE. [Concomitant]
     Active Substance: POTASSIUM CHLORIDE
  5. REPATHA [Suspect]
     Active Substance: EVOLOCUMAB
     Indication: PRODUCT USED FOR UNKNOWN INDICATION
     Dosage: UNK, Q2WK
     Route: 065
  6. LIDODERM [Concomitant]
     Active Substance: LIDOCAINE
  7. PROAIR HFA [Concomitant]
     Active Substance: ALBUTEROL SULFATE
  8. EXELON [Concomitant]
     Active Substance: RIVASTIGMINE TARTRATE
  9. VERAPAMIL [Concomitant]
     Active Substance: VERAPAMIL HYDROCHLORIDE
  10. CLONIDINE. [Concomitant]
     Active Substance: CLONIDINE
  11. COENZYME Q10 [Concomitant]
     Active Substance: UBIDECARENONE
  12. FIBERCON [Concomitant]
     Active Substance: CALCIUM POLYCARBOPHIL
  13. LEVOTHYROXINE. [Concomitant]
     Active Substance: LEVOTHYROXINE
  14. FOLBIC [Concomitant]
     Active Substance: CYANOCOBALAMIN\FOLIC ACID\PYRIDOXINE
  15. GUAIFENESIN. [Concomitant]
     Active Substance: GUAIFENESIN
  16. VITAMIN B12 [Concomitant]
     Active Substance: CYANOCOBALAMIN
  17. MIRALAX [Concomitant]
     Active Substance: POLYETHYLENE GLYCOL 3350
  18. ASPIRIN. [Concomitant]
     Active Substance: ASPIRIN
  19. CLARITIN [Concomitant]
     Active Substance: LORATADINE
  20. LISINOPRIL. [Concomitant]
     Active Substance: LISINOPRIL

REACTIONS (16)
  - Cardiomegaly [Unknown]
  - Pyrexia [Unknown]
  - Pneumonia [Unknown]
  - Pulmonary congestion [Unknown]
  - Pleural effusion [Unknown]
  - Hypertension [Unknown]
  - Tachycardia [Unknown]
  - Cardiac murmur [Unknown]
  - Leukocytosis [Unknown]
  - Dyspnoea [Unknown]
  - Sleep apnoea syndrome [Unknown]
  - Sepsis [Unknown]
  - Aortic stenosis [Unknown]
  - Hyperhidrosis [Unknown]
  - Acute respiratory failure [Unknown]
  - Nausea [Unknown]
